FAERS Safety Report 6315061-2 (Version None)
Quarter: 2009Q3

REPORT INFORMATION
  Report Type: 
  Country: None (occurrence: None)
  Receive Date: 20090819
  Receipt Date: 20090810
  Transmission Date: 20100115
  Serious: Yes (Other)
  Sender: FDA-Public Use
  Company Number: PT-JNJFOC-20090607208

PATIENT
  Age: 60 Year
  Sex: Male

DRUGS (6)
  1. REMICADE [Suspect]
     Route: 042
  2. REMICADE [Suspect]
     Route: 042
  3. REMICADE [Suspect]
     Indication: RHEUMATOID ARTHRITIS
     Dosage: STOPPED THERAPY FOR ABOUT A YEAR
     Route: 042
  4. METHOTREXATE [Concomitant]
  5. CORTICOSTEROIDS [Concomitant]
  6. ANTI-INFLAMMATORY DRUG [Concomitant]

REACTIONS (3)
  - HYPERSENSITIVITY [None]
  - INFUSION RELATED REACTION [None]
  - KNEE ARTHROPLASTY [None]
